FAERS Safety Report 9408717 (Version 1)
Quarter: 2013Q3

REPORT INFORMATION
  Report Type: Other
  Country: US (occurrence: US)
  Receive Date: 20130718
  Receipt Date: 20130718
  Transmission Date: 20140515
  Serious: Yes (Hospitalization, Other)
  Sender: FDA-Public Use
  Company Number: US-RB-056202-13

PATIENT
  Age: 31 Year
  Sex: Male

DRUGS (2)
  1. BUPRENORPHINE/NALOXONE [Suspect]
     Indication: PHANTOM PAIN
     Route: 060
  2. BUPRENORPHINE/NALOXONE [Suspect]
     Indication: PAIN
     Route: 060

REACTIONS (3)
  - Cholelithiasis [Unknown]
  - Pain [Unknown]
  - Off label use [Unknown]
